FAERS Safety Report 4668520-2 (Version None)
Quarter: 2005Q2

REPORT INFORMATION
  Report Type: 
  Country: None (occurrence: None)
  Receive Date: 20050523
  Receipt Date: 20041002
  Transmission Date: 20051028
  Serious: Yes (Other)
  Sender: FDA-Public Use
  Company Number: PHEH2004US10668

PATIENT
  Age: 89 Year
  Sex: Male

DRUGS (12)
  1. ZOLEDRONATE [Suspect]
     Indication: MULTIPLE MYELOMA
     Dosage: UNK, UNK
     Dates: start: 20020830, end: 20040701
  2. NORVASC [Concomitant]
     Dosage: 10 MG, QD
  3. HYDROCHLOROTHIAZIDE [Concomitant]
     Dosage: 12.5 MG, QD
  4. CELEBREX [Concomitant]
     Dosage: 200 MG, QD
  5. LEXAPRO [Concomitant]
  6. NEXIUM [Concomitant]
     Dosage: 40 MG, QD
  7. HYDROCODONE BITARTRATE [Concomitant]
     Dosage: 5/325 PRN
  8. TYLENOL (CAPLET) [Concomitant]
     Dosage: 500 MG, PRN
  9. ASPIRIN [Concomitant]
     Dosage: 325 MG, PRN
  10. AMBIEN [Concomitant]
     Dosage: 10 MG, PRN
  11. PERI-COLACE [Concomitant]
     Dosage: UNK, PRN
  12. MILK OF MAGNESIA [Concomitant]
     Dosage: UNK, PRN

REACTIONS (6)
  - BONE DEBRIDEMENT [None]
  - BONE DISORDER [None]
  - GENERAL SYMPTOM [None]
  - JAW DISORDER [None]
  - OSTEONECROSIS [None]
  - TOOTH EXTRACTION [None]
